FAERS Safety Report 7002419-1 (Version None)
Quarter: 2010Q3

REPORT INFORMATION
  Report Type: 
  Country: None (occurrence: None)
  Receive Date: 20100920
  Receipt Date: 20071009
  Transmission Date: 20110219
  Serious: Yes (Other)
  Sender: FDA-Public Use
  Company Number: US-ASTRAZENECA-2007UW23850

PATIENT
  Age: 45 Year
  Sex: Male
  Weight: 114.3 kg

DRUGS (28)
  1. SEROQUEL [Suspect]
     Indication: BIPOLAR DISORDER
     Route: 048
     Dates: start: 20000329
  2. SEROQUEL [Suspect]
     Indication: SCHIZOPHRENIA
     Route: 048
     Dates: start: 20000329
  3. SEROQUEL [Suspect]
     Indication: DEPRESSION
     Route: 048
     Dates: start: 20000329
  4. SEROQUEL [Suspect]
     Indication: AGITATION
     Route: 048
     Dates: start: 20000329
  5. SEROQUEL [Suspect]
     Indication: AFFECTIVE DISORDER
     Route: 048
     Dates: start: 20000329
  6. SEROQUEL [Suspect]
     Indication: MENTAL DISORDER
     Route: 048
     Dates: start: 20000329
  7. SEROQUEL [Suspect]
     Route: 048
     Dates: start: 20000701
  8. SEROQUEL [Suspect]
     Route: 048
     Dates: start: 20000701
  9. SEROQUEL [Suspect]
     Route: 048
     Dates: start: 20000701
  10. SEROQUEL [Suspect]
     Route: 048
     Dates: start: 20000701
  11. SEROQUEL [Suspect]
     Route: 048
     Dates: start: 20000701
  12. SEROQUEL [Suspect]
     Route: 048
     Dates: start: 20000701
  13. VISTARIL [Concomitant]
     Indication: ANXIETY
     Dates: start: 20030521
  14. VISTARIL [Concomitant]
     Indication: AGITATION
     Dates: start: 20030521
  15. CELEXA [Concomitant]
     Indication: DEPRESSION
     Dates: start: 20030521
  16. TRAZODONE HCL [Concomitant]
     Indication: MENTAL DISORDER
     Dates: start: 20030328
  17. LEXAPRO [Concomitant]
     Dates: start: 20040619
  18. VICODIN [Concomitant]
     Dosage: AS NEEDED
     Dates: start: 20030328
  19. SOMA [Concomitant]
     Indication: BACK PAIN
  20. VYTORIN [Concomitant]
     Dates: start: 20050325
  21. PLAVIX [Concomitant]
  22. ADVAIR DISKUS 100/50 [Concomitant]
     Dates: start: 20041107
  23. DEPAKOTE [Concomitant]
     Indication: AFFECTIVE DISORDER
     Dates: start: 20040916
  24. ATENOLOL [Concomitant]
     Dosage: STRENGTH- 50 MG, 100 MG DOSE- 50- 100 MG DAILY
     Dates: start: 20030328
  25. LOTENSIN [Concomitant]
  26. WELLBUTRIN [Concomitant]
     Dates: start: 20030328
  27. PAXIL [Concomitant]
     Dates: start: 20000329
  28. EFFEXOR [Concomitant]
     Dates: start: 20000328

REACTIONS (3)
  - DIABETES MELLITUS [None]
  - TYPE 2 DIABETES MELLITUS [None]
  - VISION BLURRED [None]
